FAERS Safety Report 4820610-7 (Version None)
Quarter: 2005Q4

REPORT INFORMATION
  Report Type: 
  Country: None (occurrence: None)
  Receive Date: 20051104
  Receipt Date: 20051018
  Transmission Date: 20060501
  Serious: Yes (Other)
  Sender: FDA-Public Use
  Company Number: US-GLAXOSMITHKLINE-A0578673A

PATIENT
  Age: 50 Year
  Sex: Male

DRUGS (4)
  1. WELLBUTRIN [Suspect]
     Indication: DEPRESSION
     Route: 048
  2. AROPAX [Suspect]
     Indication: DEPRESSION
     Dosage: 20MG PER DAY
     Route: 048
  3. PROVIGIL [Concomitant]
  4. LEXAPRO [Concomitant]
     Route: 065

REACTIONS (6)
  - ANXIETY [None]
  - DRUG INEFFECTIVE [None]
  - NARCOLEPSY [None]
  - NAUSEA [None]
  - PARAESTHESIA [None]
  - VERTIGO [None]
